FAERS Safety Report 6898160-6 (Version None)
Quarter: 2010Q3

REPORT INFORMATION
  Report Type: 
  Country: None (occurrence: None)
  Receive Date: 20100802
  Receipt Date: 20070910
  Transmission Date: 20110219
  Serious: No
  Sender: FDA-Public Use
  Company Number: US-PFIZER INC-2007076708

PATIENT
  Age: 31 Year
  Sex: Female

DRUGS (3)
  1. LYRICA [Suspect]
     Indication: NEURALGIA
     Dates: end: 20070901
  2. FIORICET [Concomitant]
     Indication: MIGRAINE
  3. VERAPAMIL [Concomitant]
     Indication: MIGRAINE

REACTIONS (6)
  - ANXIETY [None]
  - DIARRHOEA [None]
  - INSOMNIA [None]
  - MYALGIA [None]
  - NAUSEA [None]
  - VOMITING [None]
